FAERS Safety Report 4932054-8 (Version None)
Quarter: 2006Q1

REPORT INFORMATION
  Report Type: 
  Country: None (occurrence: None)
  Receive Date: 20060228
  Receipt Date: 20060221
  Transmission Date: 20060701
  Serious: Yes (Other)
  Sender: FDA-Public Use
  Company Number: 006658

PATIENT
  Age: 24 Year
  Sex: Female
  Weight: 79.4 kg

DRUGS (1)
  1. KARIVA [Suspect]
     Indication: MUSCLE SPASMS
     Dosage: 1 TABLET, QD, ORAL
     Route: 048
     Dates: start: 20040101, end: 20060218

REACTIONS (2)
  - ANGIONEUROTIC OEDEMA [None]
  - HYPERSENSITIVITY [None]
